FAERS Safety Report 25493233 (Version 2)
Quarter: 2025Q3

REPORT INFORMATION
  Report Type: Report from Study
  Country: US (occurrence: US)
  Receive Date: 20250630
  Receipt Date: 20250715
  Transmission Date: 20251021
  Serious: No
  Sender: ACADIA PHARMACEUTICALS
  Company Number: US-ACADIA PHARMACEUTICALS INC.-ACA-2025-TRF-007576

PATIENT
  Age: 12 Year
  Sex: Female
  Weight: 34.395 kg

DRUGS (10)
  1. DAYBUE [Suspect]
     Active Substance: TROFINETIDE
     Indication: Rett syndrome
     Dosage: 40 MILLILITER, BID
     Route: 048
     Dates: start: 20240814
  2. CALCIUM [Concomitant]
     Active Substance: CALCIUM
  3. LEVOCARNITINE [Concomitant]
     Active Substance: LEVOCARNITINE
  4. MELATONIN [Concomitant]
     Active Substance: MELATONIN
  5. MIRALAX [Concomitant]
     Active Substance: POLYETHYLENE GLYCOL 3350
  6. PHOSPHA 250 NEUTRAL [Concomitant]
     Active Substance: POTASSIUM PHOSPHATE, MONOBASIC\SODIUM PHOSPHATE, DIBASIC, ANHYDROUS\SODIUM PHOSPHATE, MONOBASIC, MON
  7. POTASSIUM CITRATE [Concomitant]
     Active Substance: POTASSIUM CITRATE
  8. SENNOSIDES A AND B [Concomitant]
     Active Substance: SENNOSIDES A AND B
  9. ZANTAC [Concomitant]
     Active Substance: RANITIDINE HYDROCHLORIDE
  10. ZYRTEC [Concomitant]
     Active Substance: CETIRIZINE HYDROCHLORIDE

REACTIONS (1)
  - Muscle tightness [Not Recovered/Not Resolved]

NARRATIVE: CASE EVENT DATE: 20241101
